FAERS Safety Report 5628051-X (Version None)
Quarter: 2008Q1

REPORT INFORMATION
  Report Type: 
  Country: None (occurrence: None)
  Receive Date: 20080215
  Receipt Date: 20080204
  Transmission Date: 20080703
  Serious: Yes (Hospitalization)
  Sender: FDA-Public Use
  Company Number: GB-RANBAXY-2008RR-12915

PATIENT

DRUGS (4)
  1. FLUOXETINE [Suspect]
  2. METHYLENE BLUE [Suspect]
     Dosage: 7.5 MG/KG, UNK
  3. COPROXAMOL [Concomitant]
  4. BECLAMETHASONE [Concomitant]

REACTIONS (2)
  - DRUG INTERACTION [None]
  - SEROTONIN SYNDROME [None]
